FAERS Safety Report 23678712 (Version 2)
Quarter: 2024Q2

REPORT INFORMATION
  Report Type: Spontaneous
  Country: ES (occurrence: ES)
  Receive Date: 20240327
  Receipt Date: 20240528
  Transmission Date: 20240716
  Serious: Yes (Other)
  Sender: FDA-Public Use
  Company Number: ES-Pharmaand-2023001438

PATIENT
  Sex: Male

DRUGS (1)
  1. BENDAMUSTINE [Suspect]
     Active Substance: BENDAMUSTINE
     Indication: Chronic lymphocytic leukaemia
     Route: 065

REACTIONS (2)
  - Malignant neoplasm progression [Unknown]
  - Skin disorder [Recovered/Resolved]
